FAERS Safety Report 5786747-3 (Version None)
Quarter: 2008Q2

REPORT INFORMATION
  Report Type: 
  Country: None (occurrence: None)
  Receive Date: 20080618
  Receipt Date: 20080606
  Transmission Date: 20081010
  Serious: Yes (Other)
  Sender: FDA-Public Use
  Company Number: UKP08000102

PATIENT
  Age: 65 Year
  Sex: Male

DRUGS (2)
  1. ACTONEL [Suspect]
  2. DRUG NOS [Concomitant]

REACTIONS (1)
  - PROSTATIC DISORDER [None]
